FAERS Safety Report 6385098-6 (Version None)
Quarter: 2009Q4

REPORT INFORMATION
  Report Type: 
  Country: None (occurrence: None)
  Receive Date: 20091002
  Receipt Date: 20090923
  Transmission Date: 20100525
  Serious: Yes (Hospitalization)
  Sender: FDA-Public Use
  Company Number: US-BAYER-200932744GPV

PATIENT
  Age: 40 Year
  Sex: Female
  Weight: 88 kg

DRUGS (2)
  1. ALEMTUZUMAB [Suspect]
     Indication: MULTIPLE SCLEROSIS
     Route: 042
     Dates: start: 20090216, end: 20090220
  2. METHYLPREDNISOLONE 4MG TAB [Concomitant]
     Dates: start: 20090216, end: 20090218

REACTIONS (1)
  - BLOOD CREATININE INCREASED [None]
